FAERS Safety Report 5238482-8 (Version None)
Quarter: 2007Q1

REPORT INFORMATION
  Report Type: 
  Country: None (occurrence: None)
  Receive Date: 20070215
  Receipt Date: 20070207
  Transmission Date: 20070707
  Serious: Yes (Other)
  Sender: FDA-Public Use
  Company Number: 2007PK00248

PATIENT
  Age: 73 Year
  Sex: Male

DRUGS (1)
  1. NEXIUM [Suspect]
     Indication: REFLUX OESOPHAGITIS
     Route: 048
     Dates: start: 20061201

REACTIONS (6)
  - DEMENTIA [None]
  - HEAD DISCOMFORT [None]
  - HEARING IMPAIRED [None]
  - HYPERTENSION [None]
  - NECK PAIN [None]
  - SYSTEMIC LUPUS ERYTHEMATOSUS [None]
